FAERS Safety Report 7043755-2 (Version None)
Quarter: 2010Q4

REPORT INFORMATION
  Report Type: 
  Country: None (occurrence: None)
  Receive Date: 20101013
  Receipt Date: 20101006
  Transmission Date: 20110411
  Serious: Yes (Other)
  Sender: FDA-Public Use
  Company Number: US-WYE-H18029510

PATIENT
  Sex: Male
  Weight: 96.25 kg

DRUGS (1)
  1. TORISEL [Suspect]
     Indication: RENAL CANCER
     Dosage: BOLUS WEEKLY
     Route: 042
     Dates: start: 20100601

REACTIONS (5)
  - FATIGUE [None]
  - LIVER INJURY [None]
  - PAIN [None]
  - RASH [None]
  - STOMATITIS [None]
